FAERS Safety Report 6206296-8 (Version None)
Quarter: 2009Q2

REPORT INFORMATION
  Report Type: 
  Country: None (occurrence: None)
  Receive Date: 20090528
  Receipt Date: 20090526
  Transmission Date: 20091009
  Serious: Yes (Hospitalization)
  Sender: FDA-Public Use
  Company Number: IT-ROCHE-634620

PATIENT
  Sex: Male

DRUGS (1)
  1. TORADOL [Suspect]
     Indication: BACK PAIN
     Dosage: DOSAGE FORM:INJECTABLE SOLUTION
     Route: 065
     Dates: start: 20090508, end: 20090513

REACTIONS (3)
  - EROSIVE DUODENITIS [None]
  - GASTRIC ULCER [None]
  - GASTRITIS EROSIVE [None]
